FAERS Safety Report 12086291 (Version 1)
Quarter: 2016Q1

REPORT INFORMATION
  Report Type: Spontaneous
  Country: US (occurrence: US)
  Receive Date: 20160217
  Receipt Date: 20160217
  Transmission Date: 20160526
  Serious: No
  Sender: FDA-Public Use
  Company Number: US-ALLERGAN-1510922US

PATIENT
  Sex: Female
  Weight: 74.83 kg

DRUGS (1)
  1. RESTASIS [Suspect]
     Active Substance: CYCLOSPORINE
     Indication: EYE INFLAMMATION
     Dosage: 1 DROP TO EACH EYE TWICE DAILY
     Route: 047

REACTIONS (3)
  - Therapeutic response unexpected [Not Recovered/Not Resolved]
  - Drug administered at inappropriate site [Unknown]
  - Off label use [Unknown]
